FAERS Safety Report 9372427 (Version 1)
Quarter: 2013Q2

REPORT INFORMATION
  Report Type: Report from Study
  Country: US (occurrence: US)
  Receive Date: 20130627
  Receipt Date: 20130627
  Transmission Date: 20140414
  Serious: Yes (Other)
  Sender: FDA-Public Use
  Company Number: US-MYLANLABS-2012S1023520

PATIENT
  Age: 45 Year
  Sex: Female

DRUGS (8)
  1. CLOZAPINE TABLETS [Suspect]
     Route: 048
     Dates: start: 2012, end: 20121109
  2. CLOZAPINE TABLETS [Suspect]
     Route: 048
     Dates: start: 2012, end: 20121109
  3. FLUOXETINE [Concomitant]
  4. GEMFIBROZIL [Concomitant]
  5. IBUPROFEN [Concomitant]
  6. METOPROLOL [Concomitant]
  7. SINGULAIR [Concomitant]
  8. VALPROIC ACID [Concomitant]

REACTIONS (2)
  - Granulocytopenia [Not Recovered/Not Resolved]
  - Leukopenia [Recovered/Resolved]
